FAERS Safety Report 6125621-X (Version None)
Quarter: 2009Q1

REPORT INFORMATION
  Report Type: 
  Country: None (occurrence: None)
  Receive Date: 20090318
  Receipt Date: 20090312
  Transmission Date: 20090719
  Serious: Yes (Life-Threatening, Hospitalization)
  Sender: FDA-Public Use
  Company Number: 230145K09BRA

PATIENT
  Age: 59 Year
  Sex: Male

DRUGS (4)
  1. REBIF [Suspect]
     Indication: RELAPSING-REMITTING MULTIPLE SCLEROSIS
     Dosage: 22 MCG, 3 IN 1 WEEKS : 22 MCG, 3 IN 1 WEEKS : 44 MCG, 2 IN 1 WEEKS : 22 MCG, 3 IN 1 WEEKS
     Dates: start: 20021201, end: 20070101
  2. REBIF [Suspect]
     Indication: RELAPSING-REMITTING MULTIPLE SCLEROSIS
     Dosage: 22 MCG, 3 IN 1 WEEKS : 22 MCG, 3 IN 1 WEEKS : 44 MCG, 2 IN 1 WEEKS : 22 MCG, 3 IN 1 WEEKS
     Dates: start: 20070601, end: 20070801
  3. REBIF [Suspect]
     Indication: RELAPSING-REMITTING MULTIPLE SCLEROSIS
     Dosage: 22 MCG, 3 IN 1 WEEKS : 22 MCG, 3 IN 1 WEEKS : 44 MCG, 2 IN 1 WEEKS : 22 MCG, 3 IN 1 WEEKS
     Dates: start: 20070801, end: 20080623
  4. REBIF [Suspect]
     Indication: RELAPSING-REMITTING MULTIPLE SCLEROSIS
     Dosage: 22 MCG, 3 IN 1 WEEKS : 22 MCG, 3 IN 1 WEEKS : 44 MCG, 2 IN 1 WEEKS : 22 MCG, 3 IN 1 WEEKS
     Dates: start: 20080701, end: 20090202

REACTIONS (4)
  - LEUKOPENIA [None]
  - LUNG INFECTION [None]
  - RESPIRATORY ARREST [None]
  - URINARY TRACT INFECTION [None]
